FAERS Safety Report 7211065-6 (Version None)
Quarter: 2011Q1

REPORT INFORMATION
  Report Type: 
  Country: None (occurrence: None)
  Receive Date: 20110105
  Receipt Date: 20101222
  Transmission Date: 20110831
  Serious: Yes (Other)
  Sender: FDA-Public Use
  Company Number: CA-AMGEN-CANSP2010002127

PATIENT

DRUGS (4)
  1. TAXOTERE [Concomitant]
     Indication: METASTASES TO BONE
  2. TAXOTERE [Concomitant]
     Indication: BREAST CANCER METASTATIC
  3. NEUPOGEN [Suspect]
     Indication: CHEMOTHERAPY
     Dosage: 340 A?G, QD
     Route: 058
     Dates: start: 20101008, end: 20101010
  4. ZOMETA [Concomitant]
     Dosage: UNK
     Dates: start: 20100101

REACTIONS (9)
  - SWOLLEN TONGUE [None]
  - HYPERSENSITIVITY [None]
  - SKIN EXFOLIATION [None]
  - THROAT TIGHTNESS [None]
  - ERYTHEMA [None]
  - PRURITUS [None]
  - STOMATITIS [None]
  - MYALGIA [None]
  - PAIN IN EXTREMITY [None]
